FAERS Safety Report 18395966 (Version 3)
Quarter: 2020Q4

REPORT INFORMATION
  Report Type: Spontaneous
  Country: US (occurrence: US)
  Receive Date: 20201018
  Receipt Date: 20201120
  Transmission Date: 20210114
  Serious: No
  Sender: FDA-Public Use
  Company Number: US-BEH-2020123450

PATIENT
  Sex: Male
  Weight: 76.2 kg

DRUGS (4)
  1. IDELVION [Suspect]
     Active Substance: COAGULATION FACTOR IX RECOMBINANT HUMAN
     Indication: HAEMORRHAGE
     Dosage: 4000 INTERNATIONAL UNIT, QW
     Route: 065
     Dates: start: 20201006
  2. IDELVION [Suspect]
     Active Substance: COAGULATION FACTOR IX RECOMBINANT HUMAN
     Indication: HAEMORRHAGE
     Dosage: 4000 INTERNATIONAL UNIT, QW
     Route: 065
     Dates: start: 20201006
  3. IDELVION [Suspect]
     Active Substance: COAGULATION FACTOR IX RECOMBINANT HUMAN
     Indication: TOOTH EXTRACTION
     Dosage: 4000 INTERNATIONAL UNIT, PRN
     Route: 065
     Dates: start: 20201006
  4. IDELVION [Suspect]
     Active Substance: COAGULATION FACTOR IX RECOMBINANT HUMAN
     Indication: TOOTH EXTRACTION
     Dosage: 4000 INTERNATIONAL UNIT, PRN
     Route: 065
     Dates: start: 20201006

REACTIONS (4)
  - Product preparation issue [Unknown]
  - Product dose omission issue [Unknown]
  - No adverse event [Unknown]
  - Device issue [Unknown]

NARRATIVE: CASE EVENT DATE: 20201006
